FAERS Safety Report 14916256 (Version 2)
Quarter: 2018Q2

REPORT INFORMATION
  Report Type: Report from Study
  Country: PL (occurrence: PL)
  Receive Date: 20180519
  Receipt Date: 20180530
  Transmission Date: 20180711
  Serious: Yes (Other)
  Sender: FDA-Public Use
  Company Number: PHHY2017PL173459

PATIENT
  Age: 59 Year
  Sex: Male
  Weight: 100 kg

DRUGS (5)
  1. TASIGNA [Suspect]
     Active Substance: NILOTINIB
     Indication: CHRONIC MYELOID LEUKAEMIA
     Dosage: UNK
     Route: 065
     Dates: start: 20170608
  2. TAROMENTIN [Concomitant]
     Indication: PRODUCT USED FOR UNKNOWN INDICATION
     Dosage: 2 DF, QD FOR 8 DAYS
     Route: 065
  3. TASIGNA [Suspect]
     Active Substance: NILOTINIB
     Dosage: 2 DF, UNK
     Route: 065
  4. TASIGNA [Suspect]
     Active Substance: NILOTINIB
     Dosage: 2 DF, (2X 200MG)
     Route: 065
     Dates: end: 20180511
  5. STOPERAN [Concomitant]
     Indication: PRODUCT USED FOR UNKNOWN INDICATION
     Dosage: UNK
     Route: 065

REACTIONS (11)
  - Blast cells present [Unknown]
  - Chronic myeloid leukaemia recurrent [Unknown]
  - Leukocytosis [Unknown]
  - Myelocyte present [Unknown]
  - Drug ineffective [Unknown]
  - Promyelocyte count increased [Unknown]
  - Night sweats [Unknown]
  - Metamyelocyte count increased [Unknown]
  - Rhinorrhoea [Unknown]
  - Bronchitis [Unknown]
  - Cough [Unknown]
